FAERS Safety Report 6112668-2 (Version None)
Quarter: 2009Q1

REPORT INFORMATION
  Report Type: 
  Country: None (occurrence: None)
  Receive Date: 20090312
  Receipt Date: 20090303
  Transmission Date: 20090719
  Serious: Yes (Hospitalization)
  Sender: FDA-Public Use
  Company Number: DE-ASTRAZENECA-2009PK00733

PATIENT
  Age: 85 Year
  Sex: Female
  Weight: 65 kg

DRUGS (5)
  1. RAMIPRIL [Suspect]
     Indication: HYPERTENSION
     Route: 048
     Dates: start: 20070101
  2. BELOC-ZOC COMP [Suspect]
     Indication: HYPERTENSION
     Dosage: 95 MG METOPROLOL / 12.5 MG HCT
     Route: 048
     Dates: start: 20050101, end: 20080808
  3. ACETYLSALICYLIC ACID SRT [Concomitant]
     Indication: ANGIOPATHY
     Route: 048
     Dates: start: 20060101, end: 20080808
  4. CALCIUM [Concomitant]
     Indication: OSTEOPOROSIS
     Route: 048
  5. FOSAMAX [Concomitant]
     Indication: OSTEOPOROSIS
     Route: 048
     Dates: start: 20080401

REACTIONS (3)
  - FALL [None]
  - HYPONATRAEMIA [None]
  - PRESYNCOPE [None]
